FAERS Safety Report 19027450 (Version 1)
Quarter: 2021Q1

REPORT INFORMATION
  Report Type: Report from Study
  Country: FR (occurrence: FR)
  Receive Date: 20210318
  Receipt Date: 20210318
  Transmission Date: 20210420
  Serious: Yes (Other)
  Sender: FDA-Public Use
  Company Number: FR-DSJP-DSE-2021-104256

PATIENT
  Sex: Female
  Weight: 60 kg

DRUGS (2)
  1. ENHERTU [Suspect]
     Active Substance: FAM-TRASTUZUMAB DERUXTECAN-NXKI
     Indication: HER2 POSITIVE BREAST CANCER
     Dosage: 5.4 MG/KG, CYCLIC (ONCE PER 21 DAY CYCLE)
     Route: 042
     Dates: start: 20201231, end: 20201231
  2. ENHERTU [Suspect]
     Active Substance: FAM-TRASTUZUMAB DERUXTECAN-NXKI
     Dosage: 1 DF, CYCLIC (ONCE PER 21 DAY CYCLE)
     Route: 042

REACTIONS (3)
  - Hypertransaminasaemia [Not Recovered/Not Resolved]
  - Nausea [Not Recovered/Not Resolved]
  - Cholestasis [Not Recovered/Not Resolved]

NARRATIVE: CASE EVENT DATE: 20210102
